FAERS Safety Report 15347829 (Version 1)
Quarter: 2018Q3

REPORT INFORMATION
  Report Type: Spontaneous
  Country: TW (occurrence: TW)
  Receive Date: 20180904
  Receipt Date: 20180904
  Transmission Date: 20181010
  Serious: Yes (Hospitalization, Other)
  Sender: FDA-Public Use
  Company Number: TW-MYLANLABS-2018M1064326

PATIENT
  Age: 87 Year
  Sex: Female
  Weight: 68.5 kg

DRUGS (13)
  1. IMIPRAMINE [Suspect]
     Active Substance: IMIPRAMINE
     Indication: PANIC DISORDER
     Dosage: 25 MG HS (AT THE BED TIME)
     Route: 065
  2. ALPRAZOLAM. [Concomitant]
     Active Substance: ALPRAZOLAM
     Indication: PRODUCT USED FOR UNKNOWN INDICATION
     Route: 065
  3. FENTANYL. [Concomitant]
     Active Substance: FENTANYL
     Indication: GENERAL ANAESTHESIA
     Route: 042
  4. IMIPRAMINE [Suspect]
     Active Substance: IMIPRAMINE
     Indication: MAJOR DEPRESSION
  5. ESTAZOLAM. [Concomitant]
     Active Substance: ESTAZOLAM
     Indication: PRODUCT USED FOR UNKNOWN INDICATION
     Route: 065
  6. ESCITALOPRAM [Suspect]
     Active Substance: ESCITALOPRAM OXALATE
     Indication: PANIC DISORDER
  7. PROPRANOLOL [Concomitant]
     Active Substance: PROPRANOLOL HYDROCHLORIDE
     Indication: HYPERTENSION
     Route: 065
  8. LIDOCAINE. [Concomitant]
     Active Substance: LIDOCAINE
     Indication: GENERAL ANAESTHESIA
     Route: 042
  9. CISATRACURIUM. [Concomitant]
     Active Substance: CISATRACURIUM
     Indication: ENDOTRACHEAL INTUBATION
     Route: 042
  10. ESCITALOPRAM [Suspect]
     Active Substance: ESCITALOPRAM OXALATE
     Indication: MAJOR DEPRESSION
     Route: 065
  11. SEROQUEL [Concomitant]
     Active Substance: QUETIAPINE FUMARATE
     Indication: PRODUCT USED FOR UNKNOWN INDICATION
     Dosage: 50 MG HS (AT THE BED TIME)
     Route: 065
  12. PROPOFOL. [Concomitant]
     Active Substance: PROPOFOL
     Indication: GENERAL ANAESTHESIA
     Route: 042
  13. DESFLURANE. [Concomitant]
     Active Substance: DESFLURANE
     Indication: MAINTENANCE OF ANAESTHESIA
     Dosage: 6% DESFLURANE WITH OXYGEN
     Route: 065

REACTIONS (4)
  - Electrocardiogram QT prolonged [Unknown]
  - Atrioventricular block first degree [Unknown]
  - Bradycardia [Unknown]
  - Hypotension [Recovered/Resolved]
